FAERS Safety Report 24592905 (Version 1)
Quarter: 2024Q4

REPORT INFORMATION
  Report Type: Spontaneous
  Country: US (occurrence: None)
  Receive Date: 20241107
  Receipt Date: 20241107
  Transmission Date: 20250115
  Serious: No
  Sender: Public
  Company Number: None

PATIENT
  Age: 76 Year
  Sex: Female
  Weight: 63.9 kg

DRUGS (7)
  1. METRONIDAZOLE [Suspect]
     Active Substance: METRONIDAZOLE
     Indication: Rosacea
     Dosage: OTHER QUANTITY : 1 APPLICATION;?FREQUENCY : TWICE A DAY;?
     Route: 061
     Dates: start: 20240305, end: 20240522
  2. ROSUVASTATIN [Concomitant]
     Active Substance: ROSUVASTATIN
  3. LATANOPROST [Concomitant]
     Active Substance: LATANOPROST
  4. DORZOLAMIDE [Concomitant]
     Active Substance: DORZOLAMIDE
  5. MULTI-VITAMIN [Concomitant]
     Active Substance: .ALPHA.-TOCOPHEROL ACETATE, DL-\ASCORBIC ACID\CYANOCOBALAMIN\FLUORIDE ION\FOLIC ACID\NIACIN\PYRIDOXI
  6. CALCIUM [Concomitant]
     Active Substance: CALCIUM
  7. VITAMIN D [Concomitant]
     Active Substance: VITAMIN D NOS

REACTIONS (1)
  - Dry eye [None]

NARRATIVE: CASE EVENT DATE: 20240501
